FAERS Safety Report 7772804-9 (Version None)
Quarter: 2011Q3

REPORT INFORMATION
  Report Type: 
  Country: None (occurrence: None)
  Receive Date: 20110922
  Receipt Date: 20110718
  Transmission Date: 20111222
  Serious: Yes (Hospitalization)
  Sender: FDA-Public Use
  Company Number: US-ASTRAZENECA-2009SE28422

PATIENT
  Age: 45 Year
  Sex: Female
  Weight: 96.6 kg

DRUGS (15)
  1. LASIX [Concomitant]
     Route: 048
  2. SEROQUEL [Suspect]
     Route: 048
     Dates: end: 20070818
  3. HALDOL [Concomitant]
     Dosage: 5 MG PRN
     Dates: start: 20070818
  4. TRIAMTERENE AND HYDROCHLOROTHIAZIDE [Concomitant]
     Dosage: 37.5-25
     Dates: start: 20031201
  5. PHOSLO [Concomitant]
     Indication: BLOOD PHOSPHORUS INCREASED
     Route: 048
  6. ZOLOFT [Concomitant]
     Dates: start: 20050315
  7. PEPCID [Concomitant]
  8. SEROQUEL [Suspect]
     Route: 048
     Dates: start: 20031004
  9. ATENOLOL [Concomitant]
     Dates: start: 20031117
  10. WELLBUTRIN XL [Concomitant]
     Dates: start: 20050315
  11. SEROQUEL [Suspect]
     Dosage: 25 TO 50 MG
     Route: 048
     Dates: start: 20030626
  12. SEROQUEL [Suspect]
     Route: 048
     Dates: start: 20050315
  13. ZYPREXA [Concomitant]
     Route: 048
     Dates: start: 20070801
  14. ZOLOFT [Concomitant]
     Dates: start: 20030626
  15. ATIVAN [Concomitant]
     Dates: start: 20070818

REACTIONS (4)
  - DIABETES MELLITUS [None]
  - TYPE 1 DIABETES MELLITUS [None]
  - GLAUCOMA [None]
  - WEIGHT INCREASED [None]
